FAERS Safety Report 9926832 (Version 1)
Quarter: 2014Q1

REPORT INFORMATION
  Report Type: Spontaneous
  Country: US (occurrence: US)
  Receive Date: 20140226
  Receipt Date: 20140226
  Transmission Date: 20141002
  Serious: No
  Sender: FDA-Public Use
  Company Number: US-AMGEN-USASP2013080222

PATIENT
  Age: 43 Year
  Sex: Female
  Weight: 59.41 kg

DRUGS (5)
  1. ENBREL [Suspect]
     Indication: PRODUCT USED FOR UNKNOWN INDICATION
     Dosage: 50 MG, QWK
     Route: 058
  2. XANAX [Concomitant]
     Dosage: 2 MG, UNK
  3. PRILOSEC                           /00661201/ [Concomitant]
     Dosage: 20 MG, UNK
  4. TOPAMAX [Concomitant]
     Dosage: 200 MG, UNK
  5. DEPO-PROVERA [Concomitant]
     Dosage: UNK, 400/ML

REACTIONS (3)
  - Back pain [Unknown]
  - Impaired healing [Unknown]
  - Dyspnoea [Unknown]
